FAERS Safety Report 10202653 (Version 1)
Quarter: 2014Q2

REPORT INFORMATION
  Report Type: Spontaneous
  Country: PL (occurrence: PL)
  Receive Date: 20140528
  Receipt Date: 20140528
  Transmission Date: 20141212
  Serious: Yes (Death, Hospitalization)
  Sender: FDA-Public Use
  Company Number: PL-WATSON-2014-11272

PATIENT
  Age: 42 Year
  Sex: Female

DRUGS (2)
  1. DOXEPIN (WATSON LABORATORIES) [Suspect]
     Indication: PRODUCT USED FOR UNKNOWN INDICATION
     Dosage: 30 CAPSUL, SINGLE
     Route: 065
  2. ANAFRANIL [Suspect]
     Indication: PRODUCT USED FOR UNKNOWN INDICATION
     Dosage: 60 TABLET, SINGLE
     Route: 065

REACTIONS (7)
  - Multi-organ failure [Fatal]
  - Toxicity to various agents [Fatal]
  - Intentional overdose [Fatal]
  - Completed suicide [Fatal]
  - Coma [Not Recovered/Not Resolved]
  - Convulsion [Unknown]
  - Ileus paralytic [Unknown]
